FAERS Safety Report 14780318 (Version 1)
Quarter: 2018Q2

REPORT INFORMATION
  Report Type: Spontaneous
  Country: JP (occurrence: JP)
  Receive Date: 20180419
  Receipt Date: 20180419
  Transmission Date: 20180711
  Serious: Yes (Other)
  Sender: FDA-Public Use
  Company Number: JP-MYLANLABS-2018M1025331

PATIENT
  Age: 65 Year
  Sex: Male

DRUGS (6)
  1. LEVETIRACETAM. [Suspect]
     Active Substance: LEVETIRACETAM
     Indication: STATUS EPILEPTICUS
     Dosage: 3000 MG PER DAY
     Route: 065
  2. PERAMPANEL [Suspect]
     Active Substance: PERAMPANEL
     Indication: STATUS EPILEPTICUS
     Dosage: 8 MG PER DAY
     Route: 065
  3. STIRIPENTOL [Concomitant]
     Active Substance: STIRIPENTOL
     Indication: STATUS EPILEPTICUS
     Dosage: 2000 MG PER DAY
     Route: 065
  4. TOPIRAMATE. [Suspect]
     Active Substance: TOPIRAMATE
     Indication: STATUS EPILEPTICUS
     Dosage: 500 MG PER DAY
     Route: 065
  5. CLOBAZAM [Concomitant]
     Active Substance: CLOBAZAM
     Indication: STATUS EPILEPTICUS
     Route: 065
  6. PHENYTOIN. [Suspect]
     Active Substance: PHENYTOIN
     Indication: STATUS EPILEPTICUS
     Dosage: 300 MG PER DAY
     Route: 065

REACTIONS (2)
  - Therapeutic product cross-reactivity [Unknown]
  - Drug reaction with eosinophilia and systemic symptoms [Unknown]
